FAERS Safety Report 8575881 (Version 1)
Quarter: 2012Q4

REPORT INFORMATION
  Report Type: 
  Country: IN (occurrence: IN)
  Receive Date: 20120913
  Receipt Date: 20120913
  Transmission Date: 20130627
  Serious: Yes (Death, Other)
  Sender: FDA-Public Use
  Company Number: PHHY2012IN043256

PATIENT
  Age: 42 Year
  Sex: Male

DRUGS (1)
  1. SEBIVO [Suspect]
     Dosage: 600 mg, UNK

REACTIONS (5)
  - Death [Fatal]
  - Renal failure [Not Recovered/Not Resolved]
  - Hepatic failure [Not Recovered/Not Resolved]
  - Hepatitis [Not Recovered/Not Resolved]
  - Hepatitis infectious [Not Recovered/Not Resolved]
